FAERS Safety Report 9465829 (Version 1)
Quarter: 2013Q3

REPORT INFORMATION
  Report Type: Spontaneous
  Country: US (occurrence: US)
  Receive Date: 20130820
  Receipt Date: 20130820
  Transmission Date: 20140515
  Serious: Yes (Other)
  Sender: FDA-Public Use
  Company Number: US-PFIZER INC-2013238999

PATIENT
  Age: 57 Year
  Sex: Female
  Weight: 88.44 kg

DRUGS (1)
  1. TOVIAZ [Suspect]
     Indication: HYPERTONIC BLADDER
     Dosage: 8 MG, 1X/DAY
     Route: 048
     Dates: start: 20130808

REACTIONS (3)
  - Blood pressure systolic increased [Unknown]
  - Dizziness [Unknown]
  - Tinnitus [Unknown]
